FAERS Safety Report 17008517 (Version 2)
Quarter: 2019Q4

REPORT INFORMATION
  Report Type: Spontaneous
  Country: DE (occurrence: DE)
  Receive Date: 20191108
  Receipt Date: 20191112
  Transmission Date: 20200122
  Serious: Yes (Other)
  Sender: FDA-Public Use
  Company Number: DE-BIOGEN-2019BI00803946

PATIENT
  Sex: Female
  Weight: 90 kg

DRUGS (1)
  1. TECFIDERA [Suspect]
     Active Substance: DIMETHYL FUMARATE
     Indication: RELAPSING-REMITTING MULTIPLE SCLEROSIS
     Dosage: MAINTENANCE DOSE
     Route: 048
     Dates: start: 201907

REACTIONS (6)
  - Cholangitis sclerosing [Unknown]
  - Mean cell haemoglobin concentration decreased [Unknown]
  - Gamma-glutamyltransferase increased [Unknown]
  - Monocyte count decreased [Unknown]
  - Blood alkaline phosphatase increased [Unknown]
  - Mean cell haemoglobin decreased [Unknown]
